FAERS Safety Report 9296128 (Version 1)
Quarter: 2013Q2

REPORT INFORMATION
  Report Type: Spontaneous
  Country: US (occurrence: US)
  Receive Date: 20130517
  Receipt Date: 20130517
  Transmission Date: 20140414
  Serious: Yes (Hospitalization)
  Sender: FDA-Public Use
  Company Number: US-BAYER-2013-060203

PATIENT
  Age: 54 Year
  Sex: Female
  Weight: 65.8 kg

DRUGS (8)
  1. BEYAZ [Suspect]
  2. YAZ [Suspect]
  3. GIANVI [Suspect]
  4. YASMIN [Suspect]
  5. AZITHROMYCIN [Concomitant]
     Dosage: 250 MG, UNK
  6. PREDNISONE [Concomitant]
     Dosage: 10 MG, UNK
  7. FLUTICASONE [Concomitant]
     Dosage: 50 MCG
  8. CYMBALTA [Concomitant]
     Dosage: 30 MG, DALIY
     Route: 048

REACTIONS (2)
  - Pulmonary embolism [None]
  - Deep vein thrombosis [None]
